FAERS Safety Report 5800856-1 (Version None)
Quarter: 2008Q3

REPORT INFORMATION
  Report Type: 
  Country: None (occurrence: None)
  Receive Date: 20080703
  Receipt Date: 20080620
  Transmission Date: 20090109
  Serious: Yes (Death)
  Sender: FDA-Public Use
  Company Number: FR-GENENTECH-263551

PATIENT
  Sex: Male

DRUGS (1)
  1. AVASTIN [Suspect]
     Indication: METASTATIC BRONCHIAL CARCINOMA
     Route: 065

REACTIONS (2)
  - HAEMORRHAGE [None]
  - TUMOUR NECROSIS [None]
